FAERS Safety Report 5699224-5 (Version None)
Quarter: 2008Q2

REPORT INFORMATION
  Report Type: 
  Country: None (occurrence: None)
  Receive Date: 20080408
  Receipt Date: 20080328
  Transmission Date: 20081010
  Serious: Yes (Hospitalization)
  Sender: FDA-Public Use
  Company Number: APP200800047

PATIENT
  Age: 78 Year
  Sex: Female
  Weight: 76 kg

DRUGS (19)
  1. HEPARIN SODIUM INJECTION [Suspect]
     Indication: HAEMODIALYSIS
     Dosage: 2000 USP UNITS, ONCE, INTRAVENOUS BOLUS
     Route: 040
     Dates: start: 20080119, end: 20080119
  2. FOLIC ACID [Concomitant]
  3. VITAMIN B (THIAMINE HYDROCHLORIDE) [Concomitant]
  4. ASCORBIC ACID [Concomitant]
  5. ZENOFER [Concomitant]
  6. HYDRALAZINE HCL [Concomitant]
  7. ISOSORBIDE (ISOSORBIDE) [Concomitant]
  8. LISINOPRIL [Concomitant]
  9. TOPROL-XL [Concomitant]
  10. ASPIRIN [Concomitant]
  11. PLAVIX [Concomitant]
  12. NEXIUM [Concomitant]
  13. ZOCOR [Concomitant]
  14. DARVOCET N (PROPACET) [Concomitant]
  15. TYLENOL W/ CODEINE NO. 3 [Concomitant]
  16. INSULIN REGULAR (INSULIN BOVINE) [Concomitant]
  17. INSULIN NPH (INSULIN ISOPHANE BOVINE) [Concomitant]
  18. ARANESP [Concomitant]
  19. HEPARIN SODIUM INJECTION [Suspect]

REACTIONS (11)
  - ABDOMINAL PAIN [None]
  - ANAPHYLACTIC REACTION [None]
  - ASTHENIA [None]
  - DIARRHOEA [None]
  - HYPERHIDROSIS [None]
  - HYPOTENSION [None]
  - NAUSEA [None]
  - OCCULT BLOOD [None]
  - PALLOR [None]
  - RESPIRATION ABNORMAL [None]
  - THERAPEUTIC PRODUCT CONTAMINATION [None]
